FAERS Safety Report 10276592 (Version 3)
Quarter: 2014Q3

REPORT INFORMATION
  Report Type: Spontaneous
  Country: US (occurrence: US)
  Receive Date: 20140703
  Receipt Date: 20140821
  Transmission Date: 20150326
  Serious: Yes (Other)
  Sender: FDA-Public Use
  Company Number: US-JNJFOC-20140518243

PATIENT
  Age: 72 Year
  Sex: Male
  Weight: 81.65 kg

DRUGS (4)
  1. TAMSULOSIN [Concomitant]
     Active Substance: TAMSULOSIN
     Route: 065
  2. IRON [Concomitant]
     Active Substance: IRON
     Route: 065
  3. XARELTO [Suspect]
     Active Substance: RIVAROXABAN
     Indication: PELVIC VENOUS THROMBOSIS
     Route: 048
     Dates: start: 20140210
  4. XARELTO [Suspect]
     Active Substance: RIVAROXABAN
     Indication: PELVIC VENOUS THROMBOSIS
     Route: 048

REACTIONS (6)
  - Haematuria [Recovered/Resolved]
  - Platelet count decreased [Unknown]
  - Peripheral swelling [Unknown]
  - Hypoaesthesia [Unknown]
  - Instillation site haemorrhage [Unknown]
  - Skin discolouration [Unknown]

NARRATIVE: CASE EVENT DATE: 2014
